FAERS Safety Report 11296655 (Version 1)
Quarter: 2015Q3

REPORT INFORMATION
  Report Type: Spontaneous
  Country: US (occurrence: US)
  Receive Date: 20150722
  Receipt Date: 20150722
  Transmission Date: 20151125
  Serious: No
  Sender: FDA-Public Use
  Company Number: US-ELI_LILLY_AND_COMPANY-US201004000413

PATIENT
  Sex: Female
  Weight: 70.3 kg

DRUGS (3)
  1. EFFIENT [Suspect]
     Active Substance: PRASUGREL HYDROCHLORIDE
     Indication: STENT PLACEMENT
     Dosage: 10 MG, DAILY (1/D)
     Dates: start: 20100315, end: 20100320
  2. EFFIENT [Suspect]
     Active Substance: PRASUGREL HYDROCHLORIDE
     Dosage: 10 MG, DAILY (1/D)
     Dates: start: 2010
  3. CRESTOR [Concomitant]
     Active Substance: ROSUVASTATIN CALCIUM
     Dosage: 10 MG, DAILY (1/D)
     Dates: start: 20100316

REACTIONS (6)
  - Rash macular [Unknown]
  - Cough [Not Recovered/Not Resolved]
  - Contusion [Unknown]
  - Rash [Recovered/Resolved]
  - Dyspnoea [Unknown]
  - Pruritus [Unknown]

NARRATIVE: CASE EVENT DATE: 2010
